FAERS Safety Report 24942146 (Version 2)
Quarter: 2025Q1

REPORT INFORMATION
  Report Type: Spontaneous
  Country: US (occurrence: US)
  Receive Date: 20250207
  Receipt Date: 20250221
  Transmission Date: 20250408
  Serious: No
  Sender: AGIOS PHARMACEUTICALS
  Company Number: US-AGIOS-2501US04084

PATIENT
  Age: 22 Year
  Sex: Female

DRUGS (1)
  1. PYRUKYND [Suspect]
     Active Substance: MITAPIVAT
     Indication: Pyruvate kinase deficiency anaemia
     Route: 048
     Dates: start: 20240924

REACTIONS (1)
  - Product dose omission in error [Unknown]
